FAERS Safety Report 17369505 (Version 2)
Quarter: 2020Q3

REPORT INFORMATION
  Report Type: Report from Study
  Country: US (occurrence: US)
  Receive Date: 20200204
  Receipt Date: 20200717
  Transmission Date: 20201102
  Serious: Yes (Other)
  Sender: FDA-Public Use
  Company Number: NVSC2019US046059

PATIENT
  Age: 61 Year
  Sex: Female

DRUGS (2)
  1. GILENYA [Suspect]
     Active Substance: FINGOLIMOD HYDROCHLORIDE
     Dosage: 0.5 MG, QD
     Route: 048
     Dates: start: 20180524
  2. GILENYA [Suspect]
     Active Substance: FINGOLIMOD HYDROCHLORIDE
     Indication: MULTIPLE SCLEROSIS
     Dosage: 0.5 MG, 4 TIMES A WEEK
     Route: 048
     Dates: start: 20180521

REACTIONS (4)
  - Leukopenia [Not Recovered/Not Resolved]
  - Headache [Unknown]
  - Off label use [Unknown]
  - Lymphopenia [Unknown]

NARRATIVE: CASE EVENT DATE: 20191104
